FAERS Safety Report 23972188 (Version 1)
Quarter: 2024Q2

REPORT INFORMATION
  Report Type: Spontaneous
  Country: US (occurrence: US)
  Receive Date: 20240613
  Receipt Date: 20240613
  Transmission Date: 20240716
  Serious: No
  Sender: FDA-Public Use
  Company Number: US-Calliditas-2024CAL00926

PATIENT
  Age: 63 Year
  Sex: Male

DRUGS (4)
  1. TARPEYO [Suspect]
     Active Substance: BUDESONIDE
     Indication: IgA nephropathy
     Route: 048
     Dates: start: 20240419
  2. MOUNJARO [Concomitant]
     Active Substance: TIRZEPATIDE
  3. INSULIN NOS [Concomitant]
     Active Substance: INSULIN NOS
  4. TRESIBA [Concomitant]
     Active Substance: INSULIN DEGLUDEC

REACTIONS (4)
  - Blood glucose increased [Unknown]
  - Nasopharyngitis [Unknown]
  - Urinary tract infection [Unknown]
  - Orchitis [Unknown]
